FAERS Safety Report 25009806 (Version 1)
Quarter: 2025Q1

REPORT INFORMATION
  Report Type: Spontaneous
  Country: JP (occurrence: JP)
  Receive Date: 20250225
  Receipt Date: 20250225
  Transmission Date: 20250409
  Serious: Yes (Other)
  Sender: AMGEN
  Company Number: JP-ONO-2025JP003079

PATIENT

DRUGS (2)
  1. KYPROLIS [Suspect]
     Active Substance: CARFILZOMIB
     Indication: Plasma cell myeloma
     Route: 041
  2. KYPROLIS [Suspect]
     Active Substance: CARFILZOMIB
     Route: 040

REACTIONS (1)
  - Cytopenia [Not Recovered/Not Resolved]
